FAERS Safety Report 5028195-X (Version None)
Quarter: 2006Q2

REPORT INFORMATION
  Report Type: 
  Country: None (occurrence: None)
  Receive Date: 20060613
  Receipt Date: 20060526
  Transmission Date: 20061013
  Serious: Yes (Hospitalization)
  Sender: FDA-Public Use
  Company Number: DSA_28260_2006

PATIENT
  Age: 50 Year
  Sex: Male

DRUGS (5)
  1. TEMESTA [Suspect]
     Indication: AGGRESSION
     Dosage: 3.5 MG PER 24HR
     Dates: start: 20060219, end: 20060219
  2. TEMESTA [Suspect]
     Indication: AGGRESSION
     Dosage: 1 MG ONCE PO
     Route: 048
     Dates: start: 20060220, end: 20060220
  3. CLOPIXOL             (DECANOATE) [Suspect]
     Indication: AGGRESSION
     Dosage: 90 MG PER 24HR PO
     Route: 048
     Dates: start: 20060220, end: 20060220
  4. PRAZINE [Suspect]
     Indication: AGGRESSION
     Dosage: 200 MG PER24HR PO
     Route: 048
     Dates: start: 20060219, end: 20060219
  5. ATENOLOL AND CHLORTHALIDONE [Concomitant]

REACTIONS (3)
  - AGGRESSION [None]
  - PRIAPISM [None]
  - SEDATION [None]
